FAERS Safety Report 20867636 (Version 1)
Quarter: 2022Q2

REPORT INFORMATION
  Report Type: Spontaneous
  Country: ES (occurrence: ES)
  Receive Date: 20220524
  Receipt Date: 20220524
  Transmission Date: 20220721
  Serious: Yes (Hospitalization, Other)
  Sender: FDA-Public Use
  Company Number: ES-GLAXOSMITHKLINE-ESCH2022GSK016119

PATIENT
  Age: 72 Year
  Sex: Female

DRUGS (27)
  1. BORTEZOMIB [Suspect]
     Active Substance: BORTEZOMIB
     Indication: Plasma cell myeloma
     Dosage: 1.3 MG/M2 (1,4,8,11 OF 21 DAY CYCLE)
     Route: 058
  2. POMALIDOMIDE [Suspect]
     Active Substance: POMALIDOMIDE
     Indication: Plasma cell myeloma
     Dosage: 4 MG, 1-21 DAY (28 DAY CYCLE)
     Route: 048
     Dates: end: 20220426
  3. ZOLEDRONIC ACID [Suspect]
     Active Substance: ZOLEDRONIC ACID
     Indication: Bone lesion
     Dosage: 3.5 MG (SINGLE)
     Route: 042
     Dates: start: 20220422, end: 20220422
  4. IBUPROFEN [Suspect]
     Active Substance: IBUPROFEN
     Indication: Back pain
     Dosage: 600 MG AS NEEDED
     Route: 048
  5. IBUPROFEN [Suspect]
     Active Substance: IBUPROFEN
     Indication: Arthralgia
     Dosage: 600 MG AS NEEDED
     Route: 048
     Dates: start: 2022
  6. DEXAMETHASONE [Suspect]
     Active Substance: DEXAMETHASONE
     Indication: Plasma cell myeloma
     Dosage: 40 MG (1,8,15, 22 OF 28 DAY CYCLE)
     Route: 048
     Dates: end: 20220426
  7. SERTRALINE [Concomitant]
     Active Substance: SERTRALINE HYDROCHLORIDE
     Indication: Mixed anxiety and depressive disorder
     Dosage: 100 MG, QD
     Route: 048
     Dates: start: 202103
  8. CALCIUM [Concomitant]
     Active Substance: CALCIUM
     Indication: Osteoporosis
     Dosage: 1000 MG, QD
     Route: 048
     Dates: start: 2022
  9. LISINOPRIL [Concomitant]
     Active Substance: LISINOPRIL
     Indication: Hypertension
     Dosage: 20 MG, QD
     Route: 048
     Dates: start: 20210211, end: 20220210
  10. FENTANYL [Concomitant]
     Active Substance: FENTANYL
     Indication: Arthralgia
     Dosage: 25 UG, TID
     Route: 058
     Dates: start: 20220218, end: 20220227
  11. FENTANYL [Concomitant]
     Active Substance: FENTANYL
     Dosage: 12.5 UG, TID
     Route: 058
     Dates: start: 20220207, end: 20220217
  12. FENTANYL [Concomitant]
     Active Substance: FENTANYL
     Dosage: 37.5 UG, TID
     Route: 058
     Dates: start: 20220228
  13. FENTANYL [Concomitant]
     Active Substance: FENTANYL
     Dosage: 100 UG, TID
     Route: 058
     Dates: start: 20220421
  14. AMLODIPINE [Concomitant]
     Active Substance: AMLODIPINE BESYLATE
     Indication: Hypertension
     Dosage: 10 MG, QD
     Route: 048
     Dates: start: 20210305, end: 20220210
  15. ACYCLOVIR SODIUM [Concomitant]
     Active Substance: ACYCLOVIR SODIUM
     Indication: Infection prophylaxis
     Dosage: 400 MG, QD
     Route: 048
     Dates: start: 20220127
  16. CALCIFEDIOL [Concomitant]
     Active Substance: CALCIFEDIOL
     Indication: Osteoporosis
     Dosage: 0.266 UG, QM
     Route: 048
     Dates: start: 2022
  17. ASPIRIN [Concomitant]
     Active Substance: ASPIRIN
     Indication: Thrombosis prophylaxis
     Dosage: 100 MG, QD
     Route: 048
     Dates: start: 2021, end: 20220126
  18. FOLIC ACID [Concomitant]
     Active Substance: FOLIC ACID
     Indication: Prophylaxis
     Dosage: 5 MG, QD
     Route: 048
     Dates: start: 2022
  19. HYDROCHLOROTHIAZIDE [Concomitant]
     Active Substance: HYDROCHLOROTHIAZIDE
     Indication: Oedema peripheral
     Dosage: 25 MG, QD
     Route: 048
     Dates: start: 20220228
  20. ACETAMINOPHEN [Concomitant]
     Active Substance: ACETAMINOPHEN
     Indication: Arthralgia
     Dosage: 1 G AS NEEDED
     Route: 048
     Dates: start: 2022
  21. ALPRAZOLAM [Concomitant]
     Active Substance: ALPRAZOLAM
     Indication: Mixed anxiety and depressive disorder
     Dosage: 0.5 MG, QID
     Route: 048
     Dates: start: 2022
  22. LAMIVUDINE [Concomitant]
     Active Substance: LAMIVUDINE
     Indication: Prophylaxis
     Dosage: 100 MG, QD
     Route: 048
     Dates: start: 20210127
  23. LACTOBACILLUS CASEI/LACTOBACILLUS ACIDOPHILUS/LACTOBACILLUS RHAMNOSUS [Concomitant]
     Indication: Hypokalaemia
     Dosage: 1 DF
     Route: 065
     Dates: start: 20220310
  24. ENOXAPARIN [Concomitant]
     Active Substance: ENOXAPARIN
     Indication: Thrombosis prophylaxis
     Dosage: 40 MG, QD
     Route: 048
     Dates: start: 20220127
  25. SIMVASTATIN [Concomitant]
     Active Substance: SIMVASTATIN
     Indication: Dyslipidaemia
     Dosage: 20 MG, QD
     Route: 048
     Dates: start: 202111
  26. OMEPRAZOLE [Concomitant]
     Active Substance: OMEPRAZOLE
     Indication: Prophylaxis against gastrointestinal ulcer
     Dosage: 20 MG, QD
     Route: 048
     Dates: start: 2020
  27. ACETAMINOPHEN\TRAMADOL HYDROCHLORIDE [Concomitant]
     Active Substance: ACETAMINOPHEN\TRAMADOL HYDROCHLORIDE
     Indication: Back pain
     Dosage: 37.5/325 MG, TID
     Route: 048
     Dates: start: 20220421

REACTIONS (1)
  - Acute kidney injury [Recovered/Resolved with Sequelae]

NARRATIVE: CASE EVENT DATE: 20220425
